FAERS Safety Report 20963029 (Version 1)
Quarter: 2022Q2

REPORT INFORMATION
  Report Type: Spontaneous
  Country: AE (occurrence: AE)
  Receive Date: 20220615
  Receipt Date: 20220615
  Transmission Date: 20220721
  Serious: Yes (Death, Other)
  Sender: FDA-Public Use
  Company Number: AE-BRISTOL-MYERS SQUIBB COMPANY-2022-057995

PATIENT

DRUGS (1)
  1. OPDIVO [Suspect]
     Active Substance: NIVOLUMAB
     Indication: Gastric cancer

REACTIONS (1)
  - Death [Fatal]

NARRATIVE: CASE EVENT DATE: 20220609
